FAERS Safety Report 15049524 (Version 1)
Quarter: 2018Q2

REPORT INFORMATION
  Report Type: Spontaneous
  Country: US (occurrence: US)
  Receive Date: 20180601
  Receipt Date: 20180601
  Transmission Date: 20180711
  Serious: Yes (Life-Threatening, Other)
  Sender: FDA-Public Use
  Company Number: None

PATIENT
  Age: 45 Year
  Sex: Male
  Weight: 69.7 kg

DRUGS (30)
  1. HYPOCLORUS ACID [Concomitant]
  2. SODIUM PHOSPHATE [Concomitant]
     Active Substance: SODIUM PHOSPHATE
  3. ZINC SULFATE [Concomitant]
     Active Substance: ZINC SULFATE\ZINC SULFATE ANHYDROUS
  4. FENTANYL. [Concomitant]
     Active Substance: FENTANYL
  5. FENTANYL. [Concomitant]
     Active Substance: FENTANYL
  6. ALUMINUM-MAG HYDROXISW-SIMETHICONE SUSPENSION [Concomitant]
  7. DUCOSATE [Concomitant]
  8. POTASSIUM CHLORIDE. [Concomitant]
     Active Substance: POTASSIUM CHLORIDE
  9. VIVONEX [Concomitant]
  10. GABAPENTIN. [Concomitant]
     Active Substance: GABAPENTIN
  11. CEFEPIME [Concomitant]
     Active Substance: CEFEPIME HYDROCHLORIDE
  12. EPOPROSTENOLOL IN GLYCINE DILUENT [Concomitant]
  13. MULTIVITAMIN [Concomitant]
     Active Substance: VITAMINS
  14. ARTIFICIAL TEARS [Concomitant]
     Active Substance: GLYCERIN\HYPROMELLOSES\POLYETHYLENE GLYCOL 400
  15. MAGNESIUM SULPHATE [Concomitant]
     Active Substance: MAGNESIUM SULFATE
  16. METOPROLOL. [Concomitant]
     Active Substance: METOPROLOL
  17. PANTOPRAZOLE [Concomitant]
     Active Substance: PANTOPRAZOLE
  18. MIDAZOLAM [Concomitant]
     Active Substance: MIDAZOLAM HYDROCHLORIDE
  19. NYSTATIN. [Concomitant]
     Active Substance: NYSTATIN
  20. CALCIUM CHLORIDE. [Concomitant]
     Active Substance: CALCIUM CHLORIDE
  21. CHLORHEXIDINE [Concomitant]
     Active Substance: CHLORHEXIDINE
  22. MAFENIDE CREAM [Concomitant]
  23. SENNA [Concomitant]
     Active Substance: SENNA LEAF\SENNOSIDES\SENNOSIDES A AND B
  24. SILVERSULFADIAZINE [Concomitant]
  25. OXANDROLINE [Concomitant]
  26. ASCORBIC ACID. [Concomitant]
     Active Substance: ASCORBIC ACID
  27. VECUROMIUN [Concomitant]
  28. PROPRANOLOL HYDROCH. SOL. 20MG/5ML [Suspect]
     Active Substance: PROPRANOLOL HYDROCHLORIDE
     Indication: THERMAL BURN
     Dosage: OTHER DOSE:13.76-23.28 MG;?
     Route: 048
     Dates: start: 20171210, end: 20171219
  29. KETAMINE [Concomitant]
     Active Substance: KETAMINE
  30. INSULIN [Concomitant]
     Active Substance: INSULIN NOS

REACTIONS (7)
  - Heart rate decreased [None]
  - Pleural effusion [None]
  - Bradycardia [None]
  - Hypotension [None]
  - Increased upper airway secretion [None]
  - Pulmonary congestion [None]
  - Cough [None]

NARRATIVE: CASE EVENT DATE: 20171219
